FAERS Safety Report 6172763-9 (Version None)
Quarter: 2009Q2

REPORT INFORMATION
  Report Type: 
  Country: None (occurrence: None)
  Receive Date: 20090428
  Receipt Date: 20090417
  Transmission Date: 20091009
  Serious: Yes (Hospitalization, Other)
  Sender: FDA-Public Use
  Company Number: 2009JP001841

PATIENT
  Age: 85 Year
  Sex: Female
  Weight: 35 kg

DRUGS (15)
  1. VESICARE [Suspect]
     Dosage: 5 MG, UID/QD, ORAL
     Route: 048
     Dates: start: 20080501, end: 20090306
  2. LASIX [Suspect]
     Dosage: 10 MG, UID/QD, ORAL
     Route: 048
     Dates: start: 20080501, end: 20090306
  3. KM (HERBAL EXTRACT NOS, DIASTASE, SODIUM CARBONATE ANHYDROUS, SIMALDRA [Concomitant]
  4. SOLON (SOFALCONE) FINE GRANULE [Concomitant]
  5. LIMARMONE (LIMAPROST) TABLET [Concomitant]
  6. MECOBALAMIN (MECOBALAMIN) TABLET [Concomitant]
  7. MILMAG TABLET [Concomitant]
  8. PLATIBIT (ALFACALCIDOL) TABLET [Concomitant]
  9. TAPIZOL (LANSOPRAZOLE) TABLET [Concomitant]
  10. LOSARTAN POTASSIUM [Concomitant]
  11. EBRANTIL (URAPIDIL) CAPSULE [Concomitant]
  12. BERIZYM (ENZYMES NOS) POWDER [Concomitant]
  13. BLOPRESS (CANDESARTAN CILEXETIL) TABLET [Concomitant]
  14. MAGNESIUM OXIDE (MAGNESIUM OXIDE) POWDER [Concomitant]
  15. ULGUT (BENEXATE HYDROCHLORIDE) CAPSULE [Concomitant]

REACTIONS (6)
  - DEHYDRATION [None]
  - ELECTROCARDIOGRAM QT PROLONGED [None]
  - FALL [None]
  - HYPOKALAEMIA [None]
  - MUSCLE STRAIN [None]
  - RHABDOMYOLYSIS [None]
